FAERS Safety Report 5470120-1 (Version None)
Quarter: 2007Q3

REPORT INFORMATION
  Report Type: 
  Country: None (occurrence: None)
  Receive Date: 20070924
  Receipt Date: 20070913
  Transmission Date: 20080115
  Serious: Yes (Other)
  Sender: FDA-Public Use
  Company Number: 236807K07USA

PATIENT
  Age: 52 Year
  Sex: Female
  Weight: 65.7716 kg

DRUGS (5)
  1. REBIF [Suspect]
     Indication: MULTIPLE SCLEROSIS
     Dosage: 44 MCG, 3 IN 1 WEEKS, SUBCUTANEOUS
     Route: 058
     Dates: start: 20060804, end: 20070821
  2. NEURONTIN [Concomitant]
  3. ASPIRIN [Concomitant]
  4. ALEVE     (NARPROXEN SODIUM) [Concomitant]
  5. TRAZODONE HCL [Concomitant]

REACTIONS (4)
  - BLOODY DISCHARGE [None]
  - INJECTION SITE INDURATION [None]
  - INJECTION SITE INFECTION [None]
  - WOUND COMPLICATION [None]
